FAERS Safety Report 14953487 (Version 1)
Quarter: 2018Q2

REPORT INFORMATION
  Report Type: Spontaneous
  Country: US (occurrence: US)
  Receive Date: 20180509
  Receipt Date: 20180509
  Transmission Date: 20180711
  Serious: Yes (Disabling, Other)
  Sender: FDA-Public Use
  Company Number: None

PATIENT
  Age: 80 Year
  Sex: Female
  Weight: 112.5 kg

DRUGS (27)
  1. SEREVENT DISKUS [Concomitant]
     Active Substance: SALMETEROL XINAFOATE
  2. ALBUTEROL SULFATE. [Concomitant]
     Active Substance: ALBUTEROL SULFATE
  3. FUROSEMIDE. [Concomitant]
     Active Substance: FUROSEMIDE
  4. ALPHA LIPOIC ACID [Concomitant]
     Active Substance: .ALPHA.-LIPOIC ACID
  5. VITAMIN E [Concomitant]
     Active Substance: .ALPHA.-TOCOPHEROL
  6. CITRACAL [Concomitant]
     Active Substance: CALCIUM CITRATE
  7. OXYGEN. [Concomitant]
     Active Substance: OXYGEN
  8. NORVASC [Concomitant]
     Active Substance: AMLODIPINE BESYLATE
  9. METFORMIN [Concomitant]
     Active Substance: METFORMIN HYDROCHLORIDE
  10. TRAZODONE [Concomitant]
     Active Substance: TRAZODONE HYDROCHLORIDE
  11. LEVOTHYROXINE. [Concomitant]
     Active Substance: LEVOTHYROXINE
  12. OCUVITE [Concomitant]
     Active Substance: VITAMINS
  13. D [Concomitant]
  14. IPRATROPIUM BROMIDE. [Concomitant]
     Active Substance: IPRATROPIUM BROMIDE
  15. SUCRALFATE. [Concomitant]
     Active Substance: SUCRALFATE
  16. PANTOPROZOLE SOD [Concomitant]
  17. MAGNESIUM OXIDE. [Concomitant]
     Active Substance: MAGNESIUM OXIDE
  18. ATIVAN [Concomitant]
     Active Substance: LORAZEPAM
  19. CELEBREX [Concomitant]
     Active Substance: CELECOXIB
  20. JANUVIA [Concomitant]
     Active Substance: SITAGLIPTIN PHOSPHATE
  21. VITAMIN D [Concomitant]
     Active Substance: CHOLECALCIFEROL
  22. ANORO ELLIPTA [Suspect]
     Active Substance: UMECLIDINIUM BROMIDE\VILANTEROL TRIFENATATE
     Indication: CHRONIC OBSTRUCTIVE PULMONARY DISEASE
     Dosage: ?          QUANTITY:1 PUFF(S);?
     Route: 055
     Dates: start: 20180309, end: 20180503
  23. POTASSIUM CL [Concomitant]
     Active Substance: POTASSIUM CHLORIDE
  24. ZYRTEC [Concomitant]
     Active Substance: CETIRIZINE HYDROCHLORIDE
  25. GUAIFENESIN. [Concomitant]
     Active Substance: GUAIFENESIN
  26. BIPAP [Concomitant]
     Active Substance: DEVICE
  27. ASPIRIN. [Concomitant]
     Active Substance: ASPIRIN

REACTIONS (12)
  - Nervousness [None]
  - Macular degeneration [None]
  - Muscle spasms [None]
  - Heart rate increased [None]
  - Hypotension [None]
  - Pain in extremity [None]
  - Urinary retention [None]
  - Blood glucose increased [None]
  - Insomnia [None]
  - Tremor [None]
  - Vision blurred [None]
  - Neck pain [None]
